FAERS Safety Report 23848791 (Version 1)
Quarter: 2024Q2

REPORT INFORMATION
  Report Type: Spontaneous
  Country: US (occurrence: None)
  Receive Date: 20240510
  Receipt Date: 20240510
  Transmission Date: 20240716
  Serious: Yes (Life-Threatening, Hospitalization)
  Sender: FDA-Public Use
  Company Number: None

PATIENT
  Age: 85 Year
  Sex: Female
  Weight: 88 kg

DRUGS (1)
  1. SEMAGLUTIDE [Suspect]
     Active Substance: SEMAGLUTIDE

REACTIONS (4)
  - Septic shock [None]
  - Pneumonia aspiration [None]
  - Gastrointestinal disorder [None]
  - Impaired gastric emptying [None]

NARRATIVE: CASE EVENT DATE: 20240225
